FAERS Safety Report 10177793 (Version 1)
Quarter: 2014Q2

REPORT INFORMATION
  Report Type: Spontaneous
  Country: US (occurrence: US)
  Receive Date: 20140516
  Receipt Date: 20140516
  Transmission Date: 20141212
  Serious: No
  Sender: FDA-Public Use
  Company Number: US-SANOFI-AVENTIS-2013SA090103

PATIENT
  Age: 68 Year
  Sex: Male

DRUGS (5)
  1. APIDRA SOLOSTAR [Suspect]
     Dosage: ONCE/TWICE A DAY DOSE:40 UNIT(S)
     Route: 058
  2. LANTUS SOLOSTAR [Suspect]
     Dosage: DOSE:90 UNIT(S)
     Route: 058
  3. APIDRA [Suspect]
     Dosage: ONE OR TWICE DAILY DOSE:40 UNIT(S)
     Route: 058
  4. SOLOSTAR [Concomitant]
  5. SOLOSTAR [Concomitant]

REACTIONS (2)
  - Blood glucose increased [Unknown]
  - Expired product administered [Unknown]
